FAERS Safety Report 6422397-3 (Version None)
Quarter: 2009Q4

REPORT INFORMATION
  Report Type: 
  Country: None (occurrence: None)
  Receive Date: 20091030
  Receipt Date: 20091020
  Transmission Date: 20100525
  Serious: Yes (Life-Threatening, Disabling)
  Sender: FDA-Public Use
  Company Number: GB-AMGEN-US370431

PATIENT
  Age: 33 Year
  Sex: Female
  Weight: 49 kg

DRUGS (4)
  1. ENBREL [Suspect]
     Indication: RHEUMATOID ARTHRITIS
     Route: 058
     Dates: start: 20090701, end: 20090901
  2. METHOTREXATE [Concomitant]
     Indication: RHEUMATOID ARTHRITIS
     Dosage: 12.5MG, FREQUENCY UNSPECIFIED
     Route: 048
     Dates: start: 20080901
  3. NORDETTE-28 [Concomitant]
     Indication: CONTRACEPTION
     Dosage: 1 DOSE FORM, FREQUENCY UNSPECIFIED
     Route: 048
     Dates: start: 20020101
  4. ARTHROTEC [Concomitant]
     Route: 048

REACTIONS (1)
  - INFLAMMATORY BOWEL DISEASE [None]
